FAERS Safety Report 6261950-7 (Version None)
Quarter: 2009Q3

REPORT INFORMATION
  Report Type: 
  Country: None (occurrence: None)
  Receive Date: 20090709
  Receipt Date: 20090304
  Transmission Date: 20100115
  Serious: Yes (Hospitalization)
  Sender: FDA-Public Use
  Company Number: B0582841A

PATIENT
  Age: 73 Year
  Sex: Male
  Weight: 73 kg

DRUGS (5)
  1. OMACOR [Suspect]
     Dosage: 1000MG PER DAY
     Route: 048
     Dates: start: 20060714
  2. ASPIRIN [Concomitant]
     Route: 048
  3. CLOPIDOGREL [Concomitant]
     Route: 048
  4. BETABLOCKER [Concomitant]
  5. ACE INHIBITOR [Concomitant]

REACTIONS (3)
  - CHEST PAIN [None]
  - DYSPNOEA [None]
  - IN-STENT CORONARY ARTERY RESTENOSIS [None]
